FAERS Safety Report 7033594-0 (Version None)
Quarter: 2010Q4

REPORT INFORMATION
  Report Type: 
  Country: None (occurrence: None)
  Receive Date: 20101007
  Receipt Date: 20100923
  Transmission Date: 20110411
  Serious: Yes (Death, Other)
  Sender: FDA-Public Use
  Company Number: PHEH2009US03380

PATIENT
  Sex: Female

DRUGS (4)
  1. ZOMETA [Suspect]
  2. AVASTIN [Concomitant]
  3. ACTONEL [Concomitant]
  4. PENICILLIN ^GRUNENTHAL^ [Concomitant]

REACTIONS (12)
  - ANHEDONIA [None]
  - ANXIETY [None]
  - DEATH [None]
  - DEBRIDEMENT [None]
  - DISABILITY [None]
  - EMBOLISM ARTERIAL [None]
  - INJURY [None]
  - METASTASES TO CENTRAL NERVOUS SYSTEM [None]
  - METASTASES TO LIVER [None]
  - METASTASIS [None]
  - OSTEONECROSIS OF JAW [None]
  - PAIN [None]
